FAERS Safety Report 11876479 (Version 2)
Quarter: 2016Q1

REPORT INFORMATION
  Report Type: Report from Study
  Country: JP (occurrence: JP)
  Receive Date: 20151229
  Receipt Date: 20160217
  Transmission Date: 20160526
  Serious: Yes (Hospitalization)
  Sender: FDA-Public Use
  Company Number: JP-EISAI MEDICAL RESEARCH-EC-2015-013120

PATIENT
  Age: 77 Year
  Sex: Female
  Weight: 46 kg

DRUGS (18)
  1. SHIGMABITAN [Concomitant]
  2. ETIZOLAM [Concomitant]
     Active Substance: ETIZOLAM
  3. LAMISIL [Concomitant]
     Active Substance: TERBINAFINE HYDROCHLORIDE
  4. HALAVEN [Suspect]
     Active Substance: ERIBULIN MESYLATE
     Route: 041
     Dates: start: 20150501, end: 20151015
  5. PANTETHINE [Concomitant]
     Active Substance: PANTETHINE
  6. ZOPICLONE [Concomitant]
     Active Substance: ZOPICLONE
  7. MAGMITT [Concomitant]
     Active Substance: MAGNESIUM OXIDE
  8. AMLODIN [Concomitant]
     Active Substance: AMLODIPINE BESYLATE
  9. NU-LOTAN [Concomitant]
     Active Substance: LOSARTAN POTASSIUM
  10. BONALON [Concomitant]
     Active Substance: ALENDRONATE SODIUM
  11. LANSOPRAZOLE. [Concomitant]
     Active Substance: LANSOPRAZOLE
  12. CALONAL [Concomitant]
     Active Substance: ACETAMINOPHEN
  13. HALAVEN [Suspect]
     Active Substance: ERIBULIN MESYLATE
     Indication: BREAST CANCER
     Route: 041
     Dates: start: 20150410, end: 20150417
  14. WARKMIN [Concomitant]
     Active Substance: ALFACALCIDOL
  15. CALCIUM LACTATE [Concomitant]
     Active Substance: CALCIUM LACTATE
  16. ALOSITOL [Concomitant]
     Active Substance: ALLOPURINOL
  17. HYPEN [Concomitant]
     Active Substance: ETODOLAC
  18. ONEALFA [Concomitant]
     Active Substance: ALFACALCIDOL

REACTIONS (1)
  - Neutropenia [Recovered/Resolved]

NARRATIVE: CASE EVENT DATE: 20150423
